FAERS Safety Report 8509718-2 (Version None)
Quarter: 2012Q3

REPORT INFORMATION
  Report Type: 
  Country: None (occurrence: None)
  Receive Date: 20120713
  Receipt Date: 20120710
  Transmission Date: 20120928
  Serious: Yes (Hospitalization, Other)
  Sender: FDA-Public Use
  Company Number: UG-GILEAD-2012-0055792

PATIENT
  Sex: Female

DRUGS (8)
  1. EMTRICITABINE/TENOFOVIR DISOPROXIL FUMARATE [Suspect]
     Dosage: UNK
     Dates: start: 20120501
  2. EMTRICITABINE/TENOFOVIR DISOPROXIL FUMARATE [Suspect]
     Indication: PROPHYLAXIS AGAINST HIV INFECTION
     Dosage: UNK
     Dates: start: 20100505, end: 20111214
  3. FERROUS FUMARATE W/FOLIC ACID [Concomitant]
  4. ERYTHROMYCIN [Concomitant]
     Dosage: UNK
     Dates: start: 20120305, end: 20120311
  5. CEFTRIAXONE [Concomitant]
     Dosage: UNK
     Dates: start: 20120307
  6. MEDROXYPROGESTERONE [Concomitant]
     Dosage: UNK
     Dates: start: 20111116
  7. METRONIDAZOLE [Concomitant]
     Dosage: UNK
     Dates: start: 20120307, end: 20120311
  8. ACETAMINOPHEN [Concomitant]
     Dosage: UNK
     Dates: start: 20120111, end: 20120113

REACTIONS (1)
  - ABORTION SPONTANEOUS [None]
